FAERS Safety Report 5893483-1 (Version None)
Quarter: 2008Q3

REPORT INFORMATION
  Report Type: 
  Country: None (occurrence: None)
  Receive Date: 20080923
  Receipt Date: 20080917
  Transmission Date: 20090109
  Serious: Yes (Other)
  Sender: FDA-Public Use
  Company Number: US-ASTRAZENECA-2008UW19343

PATIENT
  Sex: Male

DRUGS (2)
  1. CRESTOR [Suspect]
     Indication: CARDIOVASCULAR DISORDER
     Route: 048
  2. BETA BLOCKER [Concomitant]

REACTIONS (1)
  - MYOCARDIAL INFARCTION [None]
